FAERS Safety Report 17263873 (Version 1)
Quarter: 2020Q1

REPORT INFORMATION
  Report Type: Spontaneous
  Country: FR (occurrence: FR)
  Receive Date: 20200113
  Receipt Date: 20200113
  Transmission Date: 20200409
  Serious: Yes (Disabling)
  Sender: FDA-Public Use
  Company Number: FR-MYLANLABS-2020M1002861

PATIENT
  Age: 75 Year
  Sex: Female
  Weight: 40 kg

DRUGS (3)
  1. CLARITHROMYCIN. [Suspect]
     Active Substance: CLARITHROMYCIN
     Indication: ASPERGILLUS INFECTION
     Dosage: 2 DOSAGE FORM, QD
     Route: 048
     Dates: start: 20190110
  2. RIFADINE                           /00146901/ [Suspect]
     Active Substance: RIFAMPIN
     Indication: ASPERGILLUS INFECTION
     Dosage: 2 DOSAGE FORM, QD
     Route: 048
     Dates: start: 20190110
  3. DEXAMBUTOL [Suspect]
     Active Substance: ETHAMBUTOL HYDROCHLORIDE
     Indication: ASPERGILLUS INFECTION
     Dosage: 2 DOSAGE FORM, QD
     Route: 048
     Dates: start: 20190110, end: 20190531

REACTIONS (2)
  - Visual acuity reduced [Not Recovered/Not Resolved]
  - Visual field defect [Not Recovered/Not Resolved]

NARRATIVE: CASE EVENT DATE: 20190515
